FAERS Safety Report 9388332 (Version 3)
Quarter: 2014Q2

REPORT INFORMATION
  Report Type: Spontaneous
  Country: US (occurrence: US)
  Receive Date: 20130708
  Receipt Date: 20140509
  Transmission Date: 20141212
  Serious: Yes (Other)
  Sender: FDA-Public Use
  Company Number: US-GLAXOSMITHKLINE-A1030640A

PATIENT
  Age: 40 Year
  Sex: Female
  Weight: 72.7 kg

DRUGS (2)
  1. AVANDIA [Suspect]
     Indication: DIABETES MELLITUS
     Route: 048
     Dates: start: 20000712
  2. AVANDAMET [Suspect]
     Indication: DIABETES MELLITUS
     Route: 048

REACTIONS (6)
  - Cerebrovascular accident [Unknown]
  - Heart rate irregular [Unknown]
  - Chest pain [Unknown]
  - Gastrointestinal pain [Unknown]
  - Liver disorder [Unknown]
  - Hyperhidrosis [Unknown]
